FAERS Safety Report 6101022-5 (Version None)
Quarter: 2009Q1

REPORT INFORMATION
  Report Type: 
  Country: None (occurrence: None)
  Receive Date: 20090304
  Receipt Date: 20090224
  Transmission Date: 20090719
  Serious: Yes (Death)
  Sender: FDA-Public Use
  Company Number: US-AMGEN-US335343

PATIENT
  Sex: Female

DRUGS (3)
  1. NPLATE [Suspect]
     Indication: IDIOPATHIC THROMBOCYTOPENIC PURPURA
     Route: 065
     Dates: start: 20081103, end: 20081231
  2. IMMUNOGLOBULINS [Concomitant]
     Route: 042
  3. CORTICOSTEROID NOS [Concomitant]
     Route: 065

REACTIONS (1)
  - ACUTE RESPIRATORY FAILURE [None]
